FAERS Safety Report 9453042 (Version 1)
Quarter: 2013Q3

REPORT INFORMATION
  Report Type: Spontaneous
  Country: FR (occurrence: FR)
  Receive Date: 20130812
  Receipt Date: 20130812
  Transmission Date: 20140515
  Serious: Yes (Hospitalization)
  Sender: FDA-Public Use
  Company Number: FR-SANOFI-AVENTIS-2013SA079014

PATIENT
  Age: 74 Year
  Sex: Male

DRUGS (8)
  1. PLAVIX [Suspect]
     Indication: PRODUCT USED FOR UNKNOWN INDICATION
     Route: 048
  2. LOVENOX [Suspect]
     Indication: PRODUCT USED FOR UNKNOWN INDICATION
     Route: 058
  3. NEXAVAR [Suspect]
     Indication: HEPATOCELLULAR CARCINOMA
     Route: 048
     Dates: start: 20130612
  4. GLUCOPHAGE [Suspect]
     Indication: PRODUCT USED FOR UNKNOWN INDICATION
     Route: 048
  5. GLICLAZIDE [Suspect]
     Indication: PRODUCT USED FOR UNKNOWN INDICATION
     Route: 048
  6. TAHOR [Suspect]
     Indication: PRODUCT USED FOR UNKNOWN INDICATION
     Route: 048
  7. INEXIUM [Suspect]
     Indication: PRODUCT USED FOR UNKNOWN INDICATION
     Route: 065
  8. FORTIMEL [Concomitant]

REACTIONS (3)
  - Aphasia [Recovered/Resolved]
  - Partial seizures [Recovered/Resolved]
  - Altered state of consciousness [Recovered/Resolved]
